FAERS Safety Report 25032965 (Version 1)
Quarter: 2025Q1

REPORT INFORMATION
  Report Type: Spontaneous
  Country: US (occurrence: US)
  Receive Date: 20250303
  Receipt Date: 20250303
  Transmission Date: 20250408
  Serious: Yes (Other)
  Sender: SANDOZ
  Company Number: US-SANDOZ-SDZ2025US012516

PATIENT
  Sex: Female

DRUGS (3)
  1. AMLODIPINE BESYLATE AND BENAZEPRIL HYDROCHLORIDE [Suspect]
     Active Substance: AMLODIPINE BESYLATE\BENAZEPRIL HYDROCHLORIDE
     Indication: Hypertension
     Route: 065
     Dates: start: 2019
  2. LISINOPRIL [Suspect]
     Active Substance: LISINOPRIL
     Indication: Hypertension
     Route: 065
  3. LOTREL [Suspect]
     Active Substance: AMLODIPINE BESYLATE\BENAZEPRIL HYDROCHLORIDE
     Indication: Hypertension
     Route: 065
     Dates: start: 1998

REACTIONS (5)
  - Blood pressure increased [Unknown]
  - Headache [Unknown]
  - Weight increased [Unknown]
  - Product availability issue [Unknown]
  - Product substitution issue [Unknown]
